FAERS Safety Report 24679930 (Version 3)
Quarter: 2025Q1

REPORT INFORMATION
  Report Type: Spontaneous
  Country: US (occurrence: US)
  Receive Date: 20241129
  Receipt Date: 20250102
  Transmission Date: 20250409
  Serious: No
  Sender: TORRENT PHARMA INC.
  Company Number: US-TORRENT-00013853

PATIENT
  Sex: Female

DRUGS (2)
  1. ESCITALOPRAM [Suspect]
     Active Substance: ESCITALOPRAM OXALATE
     Indication: Anxiety
     Route: 065
     Dates: start: 202407
  2. WELLBUTRIN [Concomitant]
     Active Substance: BUPROPION HYDROCHLORIDE
     Indication: Product used for unknown indication
     Route: 065

REACTIONS (2)
  - Depression [Unknown]
  - Product residue present [Unknown]

NARRATIVE: CASE EVENT DATE: 20241114
